FAERS Safety Report 10517038 (Version 2)
Quarter: 2014Q4

REPORT INFORMATION
  Report Type: Spontaneous
  Country: FR (occurrence: IE)
  Receive Date: 20141014
  Receipt Date: 20141014
  Transmission Date: 20150528
  Serious: Yes (Death, Hospitalization, Disabling, Other)
  Sender: FDA-Public Use
  Company Number: FR-MYLANLABS-2004S1003546

PATIENT

DRUGS (5)
  1. MERCAPTAMINE BITARTRATE [Suspect]
     Active Substance: CYSTEAMINE
     Dosage: 1400 MG,QD
     Route: 048
  2. MERCAPTAMINE BITARTRATE [Suspect]
     Active Substance: CYSTEAMINE
     Dosage: 2800 G, QD
     Route: 048
  3. MERCAPTAMINE BITARTRATE [Suspect]
     Active Substance: CYSTEAMINE
     Dosage: 1600 MG,QD
     Route: 048
  4. MERCAPTAMINE BITARTRATE [Suspect]
     Active Substance: CYSTEAMINE
     Dosage: 2000 MG, QD
     Route: 048
  5. MERCAPTAMINE BITARTRATE [Suspect]
     Active Substance: CYSTEAMINE
     Indication: CYSTINOSIS
     Dosage: 60-70MG/KG QD
     Route: 048
     Dates: start: 19960501

REACTIONS (11)
  - Muscular weakness [Not Recovered/Not Resolved]
  - Intravascular papillary endothelial hyperplasia [Not Recovered/Not Resolved]
  - Compression fracture [Not Recovered/Not Resolved]
  - Cerebral ischaemia [Fatal]
  - Cardiac arrest [Recovered/Resolved with Sequelae]
  - Osteopenia [Not Recovered/Not Resolved]
  - Skin striae [Not Recovered/Not Resolved]
  - Skin fragility [Not Recovered/Not Resolved]
  - Pain in extremity [Not Recovered/Not Resolved]
  - Gait disturbance [Not Recovered/Not Resolved]
  - Ehlers-Danlos syndrome [Not Recovered/Not Resolved]

NARRATIVE: CASE EVENT DATE: 200308
